FAERS Safety Report 9355054 (Version 1)
Quarter: 2013Q2

REPORT INFORMATION
  Report Type: Spontaneous
  Country: US (occurrence: None)
  Receive Date: 20130619
  Receipt Date: 20130619
  Transmission Date: 20140414
  Serious: No
  Sender: FDA-Public Use
  Company Number: None

PATIENT
  Age: 51 Year
  Sex: Female

DRUGS (1)
  1. METHYLPREDNISOLONE ACETATE [Suspect]
     Route: 030

REACTIONS (3)
  - Injection site infection [None]
  - Injection site abscess [None]
  - Injection site vesicles [None]
